FAERS Safety Report 7804280-1 (Version None)
Quarter: 2011Q4

REPORT INFORMATION
  Report Type: 
  Country: None (occurrence: None)
  Receive Date: 20111010
  Receipt Date: 20111005
  Transmission Date: 20120403
  Serious: Yes (Hospitalization, Other)
  Sender: FDA-Public Use
  Company Number: PHHY2008NZ24477

PATIENT
  Sex: Female

DRUGS (9)
  1. OMEPRAZOLE [Concomitant]
     Dosage: 40 MG, DAILY
  2. CLOZAPINE [Suspect]
     Dosage: 300 MG, DAILY
     Dates: start: 20080915
  3. QUINAPRIL [Concomitant]
     Dosage: 10 MG, DAILY
  4. CITALOPRAM [Concomitant]
     Dosage: 20 MG, DAILY
  5. VALPROATE SODIUM [Concomitant]
     Dosage: 1 G, BID
  6. PENTASA [Concomitant]
     Dosage: 500 MG, TID
  7. METFORMIN HYDROCHLORIDE [Concomitant]
     Dosage: 800 MG, TID
  8. GLICLAZIDE [Concomitant]
     Dosage: 80 MG, DAILY
  9. CLOZAPINE [Suspect]
     Indication: SCHIZOPHRENIA
     Dates: end: 20080601

REACTIONS (8)
  - NEUTROPENIA [None]
  - HAEMATEMESIS [None]
  - AGRANULOCYTOSIS [None]
  - WHITE BLOOD CELL COUNT DECREASED [None]
  - RECTAL HAEMORRHAGE [None]
  - GASTROINTESTINAL HAEMORRHAGE [None]
  - NEUTROPHIL COUNT DECREASED [None]
  - ENTEROCOLITIS HAEMORRHAGIC [None]
